FAERS Safety Report 7035823-6 (Version None)
Quarter: 2010Q4

REPORT INFORMATION
  Report Type: 
  Country: None (occurrence: None)
  Receive Date: 20101008
  Receipt Date: 20101002
  Transmission Date: 20110411
  Serious: Yes (Hospitalization, Other)
  Sender: FDA-Public Use
  Company Number: US-AMGEN-KDL442900

PATIENT
  Sex: Female

DRUGS (1)
  1. ENBREL [Suspect]
     Indication: RHEUMATOID ARTHRITIS
     Route: 058
     Dates: end: 20100922

REACTIONS (8)
  - EYE PAIN [None]
  - HEADACHE [None]
  - HYPERTENSION [None]
  - OPTIC NEURITIS [None]
  - RHEUMATOID ARTHRITIS [None]
  - SINUS DISORDER [None]
  - SINUSITIS [None]
  - TRANSIENT ISCHAEMIC ATTACK [None]
